FAERS Safety Report 21649457 (Version 1)
Quarter: 2022Q4

REPORT INFORMATION
  Report Type: Spontaneous
  Country: US (occurrence: None)
  Receive Date: 20221128
  Receipt Date: 20221128
  Transmission Date: 20230112
  Serious: Yes (Other)
  Sender: FDA-Public Use
  Company Number: US-Unichem Pharmaceuticals (USA) Inc-UCM202211-001178

PATIENT
  Sex: Female

DRUGS (1)
  1. MONTELUKAST [Suspect]
     Active Substance: MONTELUKAST SODIUM
     Indication: Product used for unknown indication

REACTIONS (9)
  - Syncope [Unknown]
  - Hallucination [Recovered/Resolved]
  - Dyspnoea [Unknown]
  - Anosmia [Recovered/Resolved]
  - Nausea [Unknown]
  - Diarrhoea [Unknown]
  - Respiratory tract infection [Unknown]
  - Rash pruritic [Unknown]
  - Dizziness [Recovered/Resolved]
